FAERS Safety Report 4927273-0 (Version None)
Quarter: 2006Q1

REPORT INFORMATION
  Report Type: 
  Country: None (occurrence: None)
  Receive Date: 20060228
  Receipt Date: 20050420
  Transmission Date: 20060701
  Serious: No
  Sender: FDA-Public Use
  Company Number: US-GLAXOSMITHKLINE-A0555017A

PATIENT
  Age: 50 Year
  Sex: Female

DRUGS (11)
  1. IMITREX [Suspect]
     Indication: MIGRAINE
     Dosage: 1INJ AS REQUIRED
     Route: 058
  2. IMITREX [Suspect]
     Dosage: 20MG AS REQUIRED
     Route: 045
     Dates: end: 20050301
  3. PEG-INTRON [Suspect]
     Indication: DRUG USE FOR UNKNOWN INDICATION
     Dates: start: 20050201
  4. REBETOL [Concomitant]
  5. MYSOLINE [Concomitant]
  6. CELEBREX [Concomitant]
  7. TOPAMAX [Concomitant]
  8. DETROL LA [Concomitant]
  9. PROMETHAZINE [Concomitant]
  10. UROCIT-K [Concomitant]
  11. LEVAQUIN [Concomitant]

REACTIONS (6)
  - AMENORRHOEA [None]
  - BURNING SENSATION [None]
  - HYPOAESTHESIA [None]
  - INJECTION SITE HAEMORRHAGE [None]
  - PARAESTHESIA [None]
  - RETCHING [None]
